FAERS Safety Report 10222617 (Version 1)
Quarter: 2014Q2

REPORT INFORMATION
  Report Type: Spontaneous
  Country: IT (occurrence: IT)
  Receive Date: 20140606
  Receipt Date: 20140606
  Transmission Date: 20141212
  Serious: Yes (Other)
  Sender: FDA-Public Use
  Company Number: IT-WATSON-2013-25353

PATIENT
  Age: 10 Year
  Sex: Male

DRUGS (1)
  1. KETOPROFEN (UNKNOWN) [Suspect]
     Indication: PRODUCT USED FOR UNKNOWN INDICATION
     Dosage: 2 POSOLOGIC UNIT/DAY
     Route: 048
     Dates: start: 20070201, end: 20070201

REACTIONS (3)
  - Hyperbilirubinaemia [Recovering/Resolving]
  - Jaundice [Recovering/Resolving]
  - Ocular icterus [Recovering/Resolving]
